FAERS Safety Report 6181859-7 (Version None)
Quarter: 2009Q2

REPORT INFORMATION
  Report Type: 
  Country: None (occurrence: None)
  Receive Date: 20090504
  Receipt Date: 20090417
  Transmission Date: 20091009
  Serious: Yes (Other)
  Sender: FDA-Public Use
  Company Number: DSA_33495_2009

PATIENT
  Age: 82 Year
  Sex: Female

DRUGS (4)
  1. DILTIAZEM HCL [Suspect]
     Indication: HYPERTENSION
     Dosage: (120 MG BID ORAL)
     Route: 048
     Dates: start: 20081212, end: 20090126
  2. DILTIAZEM HYDROCHLORIDE [Suspect]
     Dosage: (DF)
  3. BENDROFLUMETHIAZIDE [Concomitant]
  4. ASPIRIN W/BUTALBITAL/CAFFEINE/CODEINE PHOSPH. [Concomitant]

REACTIONS (6)
  - DRUG INTOLERANCE [None]
  - HEADACHE [None]
  - LABILE BLOOD PRESSURE [None]
  - MALAISE [None]
  - PRODUCT QUALITY ISSUE [None]
  - TREMOR [None]
